FAERS Safety Report 25858545 (Version 1)
Quarter: 2025Q3

REPORT INFORMATION
  Report Type: Spontaneous
  Country: US (occurrence: US)
  Receive Date: 20250929
  Receipt Date: 20250929
  Transmission Date: 20251021
  Serious: Yes (Hospitalization, Other)
  Sender: AUROBINDO
  Company Number: US-MLMSERVICE-20250908-PI640984-00034-1

PATIENT
  Age: 30 Year
  Sex: Male

DRUGS (2)
  1. AMIODARONE HYDROCHLORIDE [Suspect]
     Active Substance: AMIODARONE HYDROCHLORIDE
     Indication: Atrial fibrillation
     Dosage: AMIODARONE WAS DILUTED IN DEXTROSE AT A CONCENTRATION OF 150 MG/100 ML (1.5 MG/ML) FOR THE LOADING D
     Route: 042
  2. DEXTROSE [Concomitant]
     Active Substance: DEXTROSE MONOHYDRATE
     Indication: Product used for unknown indication
     Route: 042

REACTIONS (2)
  - Administration site extravasation [Recovering/Resolving]
  - Skin necrosis [Recovering/Resolving]
